FAERS Safety Report 5848796-6 (Version None)
Quarter: 2008Q3

REPORT INFORMATION
  Report Type: 
  Country: None (occurrence: None)
  Receive Date: 20080818
  Receipt Date: 20080304
  Transmission Date: 20090109
  Serious: No
  Sender: FDA-Public Use
  Company Number: US-BAYER-200814859NA

PATIENT
  Age: 46 Year
  Sex: Male

DRUGS (6)
  1. BETASERON [Suspect]
     Indication: MULTIPLE SCLEROSIS
     Route: 058
     Dates: start: 20071109, end: 20071201
  2. HYDROCODONE BITARTRATE [Concomitant]
     Dosage: AS USED: 750 MG
  3. NEURONTIN [Concomitant]
     Dosage: AS USED: 600 MG
  4. IBUPROFEN [Concomitant]
  5. LYRICA [Concomitant]
     Dosage: AS USED: 25 MG
  6. RANITIDINE [Concomitant]

REACTIONS (2)
  - INJECTION SITE ERYTHEMA [None]
  - INJECTION SITE REACTION [None]
